FAERS Safety Report 14404892 (Version 1)
Quarter: 2018Q1

REPORT INFORMATION
  Report Type: Spontaneous
  Country: BE (occurrence: BE)
  Receive Date: 20180118
  Receipt Date: 20180118
  Transmission Date: 20180509
  Serious: Yes (Death, Other)
  Sender: FDA-Public Use
  Company Number: BE-ABBVIE-14K-013-1237974-00

PATIENT
  Age: 59 Year
  Sex: Male

DRUGS (4)
  1. HUMIRA [Suspect]
     Active Substance: ADALIMUMAB
     Indication: PSORIASIS
     Route: 058
     Dates: start: 20140807
  2. ACITRETINE [Concomitant]
     Active Substance: ACITRETIN
     Indication: PRODUCT USED FOR UNKNOWN INDICATION
  3. DITHRANOL COAL TAR CREAM [Concomitant]
     Indication: PRODUCT USED FOR UNKNOWN INDICATION
  4. SECUKINUMAB. [Concomitant]
     Active Substance: SECUKINUMAB
     Indication: PRODUCT USED FOR UNKNOWN INDICATION
     Dates: start: 201512

REACTIONS (4)
  - Hepatic encephalopathy [Unknown]
  - Subcutaneous abscess [Unknown]
  - Death [Fatal]
  - Pneumonia legionella [Unknown]

NARRATIVE: CASE EVENT DATE: 20170801
